FAERS Safety Report 21665523 (Version 1)
Quarter: 2022Q4

REPORT INFORMATION
  Report Type: Spontaneous
  Country: FR (occurrence: FR)
  Receive Date: 20221201
  Receipt Date: 20221201
  Transmission Date: 20230113
  Serious: Yes (Other)
  Sender: FDA-Public Use
  Company Number: FR-MACLEODS PHARMA EU LTD-MAC2022038435

PATIENT

DRUGS (2)
  1. EMTRICITABINE\TENOFOVIR [Suspect]
     Active Substance: EMTRICITABINE\TENOFOVIR
     Indication: HIV infection CDC category A
     Dosage: UNK; (END DATE: UNKNOWN DATE OF JUL 2018)
     Route: 065
  2. DARUNAVIR\RITONAVIR [Concomitant]
     Active Substance: DARUNAVIR\RITONAVIR
     Indication: HIV infection CDC category A
     Dosage: UNK
     Route: 065

REACTIONS (1)
  - Osteitis deformans [Not Recovered/Not Resolved]
